FAERS Safety Report 7443061-8 (Version None)
Quarter: 2011Q2

REPORT INFORMATION
  Report Type: 
  Country: None (occurrence: None)
  Receive Date: 20110428
  Receipt Date: 20110207
  Transmission Date: 20111010
  Serious: No
  Sender: FDA-Public Use
  Company Number: US-MYLANLABS-2011S1000274

PATIENT
  Age: 39 Year
  Sex: Female

DRUGS (3)
  1. IBUPROFEN [Concomitant]
  2. IPRATROPIUM BROMIDE AND ALBUTEROL SULFATE [Suspect]
     Route: 055
     Dates: start: 20080501, end: 20080601
  3. IPRATROPIUM BROMIDE AND ALBUTEROL SULFATE [Suspect]
     Indication: BRONCHITIS
     Route: 055
     Dates: start: 20080501, end: 20080601

REACTIONS (4)
  - TREMOR [None]
  - HEADACHE [None]
  - PARAESTHESIA [None]
  - HYPOAESTHESIA [None]
